FAERS Safety Report 26119097 (Version 1)
Quarter: 2025Q4

REPORT INFORMATION
  Report Type: Spontaneous
  Country: US (occurrence: US)
  Receive Date: 20251204
  Receipt Date: 20251204
  Transmission Date: 20260117
  Serious: No
  Sender: ACCORD
  Company Number: US-Accord-455757

PATIENT
  Sex: Male
  Weight: 99.79 kg

DRUGS (1)
  1. LEVOTHYROXINE SODIUM [Suspect]
     Active Substance: LEVOTHYROXINE SODIUM
     Indication: Hypothyroidism
     Dosage: 50MCG ONCE A MORNING (PILL)

REACTIONS (3)
  - Hyperhidrosis [Unknown]
  - Cold sweat [Unknown]
  - Peripheral swelling [Unknown]
